FAERS Safety Report 18720918 (Version 1)
Quarter: 2021Q1

REPORT INFORMATION
  Report Type: Spontaneous
  Country: US (occurrence: US)
  Receive Date: 20210108
  Receipt Date: 20210108
  Transmission Date: 20210419
  Serious: No
  Sender: FDA-Public Use
  Company Number: US-GALDERMA-US2020030572

PATIENT

DRUGS (4)
  1. DIFFERIN GEL [Suspect]
     Active Substance: ADAPALENE
     Indication: ACNE
     Dosage: 0.1%
     Route: 061
  2. DIFFERIN OIL CONTROL MOISTURIZER SPF 30 [Suspect]
     Active Substance: AVOBENZONE\OCTISALATE\OCTOCRYLENE
     Indication: ACNE
     Route: 061
  3. DIFFERIN GENTLE CLEANSER (COSMETICS) [Suspect]
     Active Substance: COSMETICS
     Indication: ACNE
     Route: 061
  4. CETAPHIL [COSMETICS] [Suspect]
     Active Substance: COSMETICS
     Indication: ACNE
     Route: 061

REACTIONS (5)
  - Application site discolouration [Unknown]
  - Application site haemorrhage [Unknown]
  - Application site exfoliation [Unknown]
  - Application site erythema [Unknown]
  - Application site pain [Unknown]
